FAERS Safety Report 15806710 (Version 1)
Quarter: 2019Q1

REPORT INFORMATION
  Report Type: Spontaneous
  Country: US (occurrence: US)
  Receive Date: 20190110
  Receipt Date: 20190110
  Transmission Date: 20190417
  Serious: No
  Sender: FDA-Public Use
  Company Number: US-BAYER-2019-002482

PATIENT
  Age: 67 Year
  Sex: Male

DRUGS (1)
  1. ALEVE [Suspect]
     Active Substance: NAPROXEN SODIUM
     Indication: ORTHODONTIC PROCEDURE
     Route: 048
     Dates: end: 20181229

REACTIONS (7)
  - Peripheral swelling [Not Recovered/Not Resolved]
  - Insomnia [Unknown]
  - Sinus disorder [Not Recovered/Not Resolved]
  - Adverse event [Unknown]
  - Joint swelling [Not Recovered/Not Resolved]
  - Product use in unapproved indication [Unknown]
  - Throat irritation [Not Recovered/Not Resolved]
